FAERS Safety Report 10211017 (Version 1)
Quarter: 2014Q2

REPORT INFORMATION
  Report Type: Spontaneous
  Country: IT (occurrence: IT)
  Receive Date: 20140602
  Receipt Date: 20140602
  Transmission Date: 20141212
  Serious: Yes (Other)
  Sender: FDA-Public Use
  Company Number: IT-MALLINCKRODT-T201402352

PATIENT
  Age: 28 Year
  Sex: Male

DRUGS (1)
  1. OFIRMEV [Suspect]
     Indication: ABDOMINAL PAIN UPPER
     Dosage: 1 DOSAGE FORM 1/1 DAY
     Route: 042
     Dates: start: 20140411

REACTIONS (1)
  - Anaphylactic shock [Recovering/Resolving]
